FAERS Safety Report 6278581-5 (Version None)
Quarter: 2009Q3

REPORT INFORMATION
  Report Type: 
  Country: None (occurrence: None)
  Receive Date: 20090722
  Receipt Date: 20081108
  Transmission Date: 20100115
  Serious: No
  Sender: FDA-Public Use
  Company Number: US-BAUSCH-2008BL004819

PATIENT
  Sex: Female

DRUGS (3)
  1. OPCON-A [Suspect]
     Indication: OCULAR HYPERAEMIA
     Route: 047
     Dates: start: 20081107
  2. OPCON-A [Suspect]
     Indication: EYE PAIN
     Route: 047
     Dates: start: 20081107
  3. OPCON-A [Suspect]
     Indication: DRY EYE
     Route: 047
     Dates: start: 20081107

REACTIONS (1)
  - DYSGEUSIA [None]
